FAERS Safety Report 19602587 (Version 1)
Quarter: 2021Q3

REPORT INFORMATION
  Report Type: Spontaneous
  Country: US (occurrence: US)
  Receive Date: 20210723
  Receipt Date: 20210723
  Transmission Date: 20211014
  Serious: Yes (Other)
  Sender: FDA-Public Use
  Company Number: US-JNJFOC-20210740614

PATIENT
  Sex: Female

DRUGS (6)
  1. XARELTO [Suspect]
     Active Substance: RIVAROXABAN
     Indication: PRODUCT USED FOR UNKNOWN INDICATION
     Route: 048
     Dates: start: 201702
  2. IBRANCE [Suspect]
     Active Substance: PALBOCICLIB
     Dosage: 21 DAYS
     Route: 065
  3. FULVESTRANT. [Suspect]
     Active Substance: FULVESTRANT
     Route: 065
     Dates: start: 20160501
  4. XGEVA [Concomitant]
     Active Substance: DENOSUMAB
     Dates: start: 201605
  5. IBRANCE [Suspect]
     Active Substance: PALBOCICLIB
     Indication: BREAST CANCER METASTATIC
     Route: 065
     Dates: start: 20160501
  6. FULVESTRANT. [Suspect]
     Active Substance: FULVESTRANT
     Indication: BREAST CANCER METASTATIC
     Route: 065
     Dates: start: 201511

REACTIONS (2)
  - Metastases to bone [Recovered/Resolved]
  - Tendon disorder [Recovered/Resolved]

NARRATIVE: CASE EVENT DATE: 201903
